FAERS Safety Report 10812330 (Version 1)
Quarter: 2015Q1

REPORT INFORMATION
  Report Type: Spontaneous
  Country: CN (occurrence: CN)
  Receive Date: 20150218
  Receipt Date: 20150218
  Transmission Date: 20150721
  Serious: Yes (Other)
  Sender: FDA-Public Use
  Company Number: CN-JNJFOC-20150202220

PATIENT

DRUGS (8)
  1. DEXAMETHASONE. [Concomitant]
     Active Substance: DEXAMETHASONE
     Indication: VOMITING
     Route: 065
  2. CALCIUM FOLINATE [Concomitant]
     Active Substance: LEUCOVORIN CALCIUM
     Dosage: 11 TIMES
     Route: 042
  3. CISPLATIN. [Suspect]
     Active Substance: CISPLATIN
     Indication: OSTEOSARCOMA
     Dosage: 2-H INFUSION WITH PRE- AND POSTOPERATIVE HYDRATION AND MANNITOL DIURESIS
     Route: 042
  4. IFOSFAMIDE. [Suspect]
     Active Substance: IFOSFAMIDE
     Indication: OSTEOSARCOMA
     Dosage: 4-H INFUSION
     Route: 042
  5. DOXORUBICIN [Suspect]
     Active Substance: DOXORUBICIN
     Indication: OSTEOSARCOMA
     Route: 042
  6. METHOTREXATE [Suspect]
     Active Substance: METHOTREXATE
     Indication: OSTEOSARCOMA
     Dosage: 4-H INFUSION
     Route: 042
  7. MESNA. [Concomitant]
     Active Substance: MESNA
     Dosage: 4-H INFUSION
     Route: 065
  8. ONDANSETRON [Concomitant]
     Active Substance: ONDANSETRON
     Indication: VOMITING
     Route: 065

REACTIONS (14)
  - Vomiting [Unknown]
  - Cardiac failure [Unknown]
  - Mucosal inflammation [Unknown]
  - Nausea [Unknown]
  - Infection [Unknown]
  - Renal impairment [Unknown]
  - Hepatic function abnormal [Unknown]
  - Anaemia [Unknown]
  - Alopecia [Unknown]
  - Myocardial ischaemia [Unknown]
  - Product use issue [Unknown]
  - Leukopenia [Unknown]
  - Arrhythmia [Unknown]
  - Thrombocytopenia [Unknown]
